FAERS Safety Report 17934012 (Version 1)
Quarter: 2020Q2

REPORT INFORMATION
  Report Type: Spontaneous
  Country: US (occurrence: US)
  Receive Date: 20200624
  Receipt Date: 20200624
  Transmission Date: 20200714
  Serious: Yes (Hospitalization, Other)
  Sender: FDA-Public Use
  Company Number: US-AUROBINDO-AUR-APL-2020-030015

PATIENT
  Age: 30 Year
  Sex: Male

DRUGS (2)
  1. QUETIAPINE. [Suspect]
     Active Substance: QUETIAPINE
     Indication: AGGRESSION
  2. QUETIAPINE. [Suspect]
     Active Substance: QUETIAPINE
     Indication: CONFUSIONAL STATE
     Dosage: 600 MILLIGRAM, DAILY
     Route: 065

REACTIONS (6)
  - Confusional state [Unknown]
  - Impulsive behaviour [Unknown]
  - Agitation [Recovering/Resolving]
  - Cognitive disorder [Unknown]
  - Balance disorder [Unknown]
  - Fall [Unknown]
